FAERS Safety Report 4877360-0 (Version None)
Quarter: 2006Q1

REPORT INFORMATION
  Report Type: 
  Country: None (occurrence: None)
  Receive Date: 20060109
  Receipt Date: 20051226
  Transmission Date: 20060701
  Serious: Yes (Other)
  Sender: FDA-Public Use
  Company Number: 2006000588

PATIENT
  Age: 36 Year
  Sex: Male
  Weight: 86.1834 kg

DRUGS (2)
  1. CETIRIZINE HCL [Suspect]
     Indication: PHARYNGOLARYNGEAL PAIN
     Dosage: ^1 TABLET^
     Dates: start: 20051225, end: 20051226
  2. CETIRIZINE HCL [Suspect]
     Indication: RHINORRHOEA
     Dosage: ^1 TABLET^
     Dates: start: 20051225, end: 20051226

REACTIONS (4)
  - FACIAL PALSY [None]
  - INFECTION [None]
  - NIGHT BLINDNESS [None]
  - SPEECH DISORDER [None]
